FAERS Safety Report 5233553-4 (Version None)
Quarter: 2007Q1

REPORT INFORMATION
  Report Type: 
  Country: None (occurrence: None)
  Receive Date: 20061208
  Receipt Date: 20060306
  Transmission Date: 20070707
  Serious: Yes (Other)
  Sender: FDA-Public Use
  Company Number: 2006UW03758

PATIENT
  Age: 82 Year
  Sex: Female
  Weight: 63.502 kg

DRUGS (5)
  1. CRESTOR [Suspect]
     Indication: HYPERCHOLESTEROLAEMIA
     Dosage: 10 MG QD PO
     Route: 048
  2. BENICAR [Concomitant]
  3. VERAPAMIL [Concomitant]
  4. PREVACID [Concomitant]
  5. WARFARIN SODIUM [Concomitant]

REACTIONS (3)
  - INSOMNIA [None]
  - NERVOUSNESS [None]
  - PRURITUS [None]
